FAERS Safety Report 14653030 (Version 1)
Quarter: 2018Q1

REPORT INFORMATION
  Report Type: Spontaneous
  Country: IN (occurrence: IN)
  Receive Date: 20180319
  Receipt Date: 20180319
  Transmission Date: 20180509
  Serious: Yes (Death, Hospitalization, Other)
  Sender: FDA-Public Use
  Company Number: IN-ALVOGEN-2018-ALVOGEN-095509

PATIENT
  Age: 45 Year
  Sex: Female

DRUGS (2)
  1. DAPSONE. [Suspect]
     Active Substance: DAPSONE
     Indication: LEPROSY
  2. RIFAMPICIN [Concomitant]
     Active Substance: RIFAMPIN
     Indication: LEPROSY

REACTIONS (6)
  - Hypothyroidism [Unknown]
  - Pulmonary hypertension [Unknown]
  - Drug reaction with eosinophilia and systemic symptoms [Fatal]
  - Acute kidney injury [Unknown]
  - Lower respiratory tract infection [Fatal]
  - Sepsis [Fatal]
